FAERS Safety Report 20997974 (Version 3)
Quarter: 2022Q3

REPORT INFORMATION
  Report Type: Report from Study
  Country: AU (occurrence: None)
  Receive Date: 20220623
  Receipt Date: 20220706
  Transmission Date: 20221027
  Serious: Yes (Hospitalization)
  Sender: FDA-Public Use
  Company Number: AU-ROCHE-3086918

PATIENT
  Age: 53 Year
  Sex: Male
  Weight: 61 kg

DRUGS (30)
  1. GLOFITAMAB [Suspect]
     Active Substance: GLOFITAMAB
     Indication: Diffuse large B-cell lymphoma
     Dosage: DATE LAST DOSE GIVEN PRIOR TO SAE ON 26/APR/2022?DATE LAST DOSE GIVEN PRIOR TO SAE ON 14/JUN/2022
     Route: 042
     Dates: start: 20220426
  2. GLOFITAMAB [Suspect]
     Active Substance: GLOFITAMAB
     Route: 042
     Dates: start: 20220426, end: 20220503
  3. GLOFITAMAB [Suspect]
     Active Substance: GLOFITAMAB
     Dosage: ON 14/JUN/2022 LAST DOSE GIVEN
     Route: 042
     Dates: start: 20220517
  4. RITUXIMAB [Suspect]
     Active Substance: RITUXIMAB
     Indication: Diffuse large B-cell lymphoma
     Dosage: DATE LAST DOSE GIVEN PRIOR TO SAE ON 19/APR/2022?DATE LAST DOSE GIVEN PRIOR TO SAE ON 07/JUN/2022
     Route: 042
     Dates: start: 20220329
  5. CYCLOPHOSPHAMIDE [Suspect]
     Active Substance: CYCLOPHOSPHAMIDE
     Indication: Diffuse large B-cell lymphoma
     Dosage: DATE LAST DOSE GIVEN PRIOR TO SAE ON 19/APR/2022?DATE LAST DOSE GIVEN PRIOR TO SAE ON 07/JUN/2022
     Route: 042
     Dates: start: 20220329
  6. VINCRISTINE [Suspect]
     Active Substance: VINCRISTINE
     Indication: Diffuse large B-cell lymphoma
     Dosage: DATE LAST DOSE GIVEN PRIOR TO SAE ON 19/APR/2022?DATE LAST DOSE GIVEN PRIOR TO SAE ON 07/JUN/2022
     Route: 042
     Dates: start: 20220329
  7. DOXORUBICIN [Suspect]
     Active Substance: DOXORUBICIN
     Indication: Diffuse large B-cell lymphoma
     Dosage: DATE LAST DOSE GIVEN PRIOR TO SAE ON 19/APR/2022?DATE LAST DOSE GIVEN PRIOR TO SAE ON 07/JUN/2022
     Route: 042
     Dates: start: 20220329
  8. PREDNISOLONE [Suspect]
     Active Substance: PREDNISOLONE
     Indication: Diffuse large B-cell lymphoma
     Dosage: DATE LAST DOSE GIVEN PRIOR TO SAE ON 23/APR/2022?DATE LAST DOSE GIVEN PRIOR TO SAE ON 07/JUN/2022?DA
     Route: 048
     Dates: start: 20220329
  9. ALLOPURINOL [Concomitant]
     Active Substance: ALLOPURINOL
     Route: 048
     Dates: start: 20220408, end: 20220517
  10. ALLOPURINOL [Concomitant]
     Active Substance: ALLOPURINOL
     Route: 048
     Dates: start: 20220615, end: 20220615
  11. DOCUSATE SODIUM\SENNOSIDES A AND B [Concomitant]
     Active Substance: DOCUSATE SODIUM\SENNOSIDES A AND B
     Dosage: 100/16 MG
     Route: 048
     Dates: start: 20220407
  12. DOCUSATE SODIUM\SENNOSIDES A AND B [Concomitant]
     Active Substance: DOCUSATE SODIUM\SENNOSIDES A AND B
     Route: 048
     Dates: start: 20220615
  13. DOCUSATE SODIUM\SENNOSIDES A AND B [Concomitant]
     Active Substance: DOCUSATE SODIUM\SENNOSIDES A AND B
     Route: 048
     Dates: start: 20220616, end: 20220616
  14. MOVICOL [Concomitant]
     Active Substance: POLYETHYLENE GLYCOL 3350\POTASSIUM CHLORIDE\SODIUM BICARBONATE\SODIUM CHLORIDE
     Dosage: 2 SACHETS
     Route: 048
     Dates: start: 20220407, end: 20220510
  15. MOVICOL [Concomitant]
     Active Substance: POLYETHYLENE GLYCOL 3350\POTASSIUM CHLORIDE\SODIUM BICARBONATE\SODIUM CHLORIDE
     Route: 048
     Dates: end: 20220616
  16. NALOXONE HYDROCHLORIDE\OXYCODONE HYDROCHLORIDE [Concomitant]
     Active Substance: NALOXONE HYDROCHLORIDE\OXYCODONE HYDROCHLORIDE
     Indication: Pain
     Dosage: 40/20 MG
     Route: 048
     Dates: start: 20220407, end: 20220502
  17. NALOXONE HYDROCHLORIDE\OXYCODONE HYDROCHLORIDE [Concomitant]
     Active Substance: NALOXONE HYDROCHLORIDE\OXYCODONE HYDROCHLORIDE
     Dosage: 30/15 MG
     Route: 048
     Dates: start: 20220503, end: 20220517
  18. OXYCODONE [Concomitant]
     Active Substance: OXYCODONE
     Indication: Pain
     Route: 048
     Dates: start: 202204, end: 20220510
  19. OXYCODONE [Concomitant]
     Active Substance: OXYCODONE
     Dosage: 2 DOSES ON 15/JUN/2022?1 DOSE ON 16/JUN/2022
     Route: 048
     Dates: start: 20220615, end: 20220616
  20. PANTOPRAZOLE [Concomitant]
     Active Substance: PANTOPRAZOLE
     Route: 048
     Dates: start: 20220407
  21. PANTOPRAZOLE [Concomitant]
     Active Substance: PANTOPRAZOLE
     Dosage: 15/JUN/2022
     Route: 048
     Dates: start: 20220614, end: 20220616
  22. BACTRIM [Concomitant]
     Active Substance: SULFAMETHOXAZOLE\TRIMETHOPRIM
     Dosage: 800/16 MG
     Route: 048
     Dates: start: 20220407
  23. BACTRIM [Concomitant]
     Active Substance: SULFAMETHOXAZOLE\TRIMETHOPRIM
     Route: 048
     Dates: start: 20220616, end: 20220616
  24. VALACYCLOVIR HYDROCHLORIDE [Concomitant]
     Active Substance: VALACYCLOVIR HYDROCHLORIDE
     Dosage: ALSO TAKEN ON: 16/JUN/2022
     Route: 048
     Dates: start: 20220408, end: 20220616
  25. PALONOSETRON [Concomitant]
     Active Substance: PALONOSETRON
     Route: 042
     Dates: start: 20220419
  26. ENOXAPARIN [Concomitant]
     Active Substance: ENOXAPARIN
     Route: 058
     Dates: start: 20220503, end: 20220504
  27. ENOXAPARIN [Concomitant]
     Active Substance: ENOXAPARIN
     Dosage: 15/JUN/2022
     Dates: start: 20220614, end: 20220616
  28. SALINE [Concomitant]
     Active Substance: SODIUM CHLORIDE
     Indication: Hypotension
     Route: 042
     Dates: start: 20220427
  29. SALINE [Concomitant]
     Active Substance: SODIUM CHLORIDE
     Route: 042
     Dates: start: 20220329
  30. HUMAN RED BLOOD CELL [Concomitant]
     Active Substance: HUMAN RED BLOOD CELL
     Indication: Anaemia
     Dosage: 2 UNITS
     Route: 042
     Dates: start: 20220428, end: 20220518

REACTIONS (3)
  - Cytokine release syndrome [Recovered/Resolved]
  - Cytokine release syndrome [Recovered/Resolved]
  - Febrile neutropenia [Recovered/Resolved]

NARRATIVE: CASE EVENT DATE: 20220427
